FAERS Safety Report 10585222 (Version 1)
Quarter: 2014Q4

REPORT INFORMATION
  Report Type: Spontaneous
  Country: US (occurrence: US)
  Receive Date: 20141114
  Receipt Date: 20141114
  Transmission Date: 20150529
  Serious: No
  Sender: FDA-Public Use
  Company Number: US-VIVUS-2014V1000457

PATIENT
  Age: 64 Year
  Sex: Male
  Weight: 88.08 kg

DRUGS (5)
  1. ZOCOR [Concomitant]
     Active Substance: SIMVASTATIN
     Indication: PRODUCT USED FOR UNKNOWN INDICATION
     Dosage: PATIENT STATED HE DID NOT KNOW DOSAGE AND TOOK IT PRIOR TO QSYMIA
     Dates: end: 2014
  2. QSYMIA [Suspect]
     Active Substance: PHENTERMINE HYDROCHLORIDE\TOPIRAMATE
     Indication: WEIGHT DECREASED
     Route: 048
     Dates: start: 201407
  3. SYNTHROID [Concomitant]
     Active Substance: LEVOTHYROXINE SODIUM
     Indication: HYPOTHYROIDISM
     Dosage: PATIENT STATED HE DID NOT KNOW DOSAGE AND TOOK IT PRIOR TO QSYMIA
     Dates: end: 2014
  4. HYZAAR [Concomitant]
     Active Substance: HYDROCHLOROTHIAZIDE\LOSARTAN POTASSIUM
     Indication: HYPERTENSION
     Dosage: PATIENT STATED DOSE WAS LOWERED SINCE BEING ON QSYMIA
     Dates: start: 1989
  5. NIFEDIPINE. [Concomitant]
     Active Substance: NIFEDIPINE
     Indication: HYPERTENSION
     Dosage: PATIENT STATED HE DID NOT KNOW DOSAGE AND TOOK IT PRIOR TO QSYMIA
     Dates: end: 2014

REACTIONS (2)
  - Dry mouth [Recovering/Resolving]
  - Constipation [Recovering/Resolving]

NARRATIVE: CASE EVENT DATE: 201407
